FAERS Safety Report 7329834-0 (Version None)
Quarter: 2011Q1

REPORT INFORMATION
  Report Type: 
  Country: None (occurrence: None)
  Receive Date: 20110303
  Receipt Date: 20110218
  Transmission Date: 20110831
  Serious: Yes (Death)
  Sender: FDA-Public Use
  Company Number: US-ELI_LILLY_AND_COMPANY-US201012005781

PATIENT
  Sex: Female

DRUGS (9)
  1. INSULIN [Concomitant]
     Dosage: 45 IU, UNK
  2. BUSPAR [Concomitant]
     Dosage: 5 D/F, 3/D
  3. AMLODIPINE [Concomitant]
     Dosage: 10 MG, DAILY (1/D)
  4. VITAMIN B-12 [Concomitant]
     Dosage: 2000 UG, DAILY (1/D)
     Route: 048
  5. VITAMIN D [Concomitant]
  6. ASA [Concomitant]
     Dosage: 81 MG, DAILY (1/D)
  7. CITRUCEL [Concomitant]
  8. EFFEXOR XR [Concomitant]
     Dosage: 187.5 MG, DAILY (1/D)
  9. ZYPREXA [Suspect]
     Dosage: 5 MG, 2/D
     Route: 048
     Dates: start: 20090612

REACTIONS (1)
  - FAILURE TO THRIVE [None]
